FAERS Safety Report 7375665-5 (Version None)
Quarter: 2011Q1

REPORT INFORMATION
  Report Type: 
  Country: None (occurrence: None)
  Receive Date: 20110325
  Receipt Date: 20110322
  Transmission Date: 20110831
  Serious: Yes (Other)
  Sender: FDA-Public Use
  Company Number: US-PFIZER INC-2011042037

PATIENT

DRUGS (16)
  1. CLONIDINE [Concomitant]
     Dosage: UNK
  2. METOPROLOL [Concomitant]
     Dosage: UNK
  3. VALSARTAN [Concomitant]
     Dosage: UNK
  4. DILTIAZEM HYDROCHLORIDE [Concomitant]
     Dosage: UNK
  5. NORCO [Concomitant]
     Dosage: UNK
  6. VENLAFAXINE HYDROCHLORIDE [Concomitant]
     Dosage: UNK
  7. FUROSEMIDE [Concomitant]
     Dosage: UNK
  8. MORPHINE [Concomitant]
     Dosage: UNK
  9. CRESTOR [Concomitant]
     Dosage: UNK
  10. LOPERAMIDE HYDROCHLORIDE [Concomitant]
     Dosage: UNK
  11. WELLBUTRIN [Concomitant]
     Dosage: UNK
  12. WARFARIN SODIUM [Concomitant]
     Dosage: UNK
  13. TIKOSYN [Suspect]
     Indication: ATRIAL FIBRILLATION
     Dosage: 250 UG, 2X/DAY
     Route: 048
     Dates: start: 20110222
  14. POTASSIUM [Concomitant]
     Indication: MINERAL SUPPLEMENTATION
     Dosage: UNK
  15. SPIRIVA [Concomitant]
     Dosage: UNK
     Route: 055
  16. ZOMIG [Concomitant]
     Dosage: UNK

REACTIONS (1)
  - NO ADVERSE EVENT [None]
